FAERS Safety Report 9852273 (Version 1)
Quarter: 2013Q4

REPORT INFORMATION
  Report Type: Spontaneous
  Country: US (occurrence: None)
  Receive Date: 20131127
  Receipt Date: 20131127
  Transmission Date: 20140711
  Serious: Yes (Other)
  Sender: FDA-Public Use
  Company Number: 224477LEO

PATIENT
  Age: 69 Year
  Sex: Male

DRUGS (1)
  1. PICATO [Suspect]
     Indication: ACTINIC KERATOSIS
     Dosage: (1 D), TOPICAL
     Route: 061
     Dates: start: 20131027

REACTIONS (4)
  - Punctate keratitis [None]
  - Eye burns [None]
  - Exposure via direct contact [None]
  - Drug administered at inappropriate site [None]
